FAERS Safety Report 16116834 (Version 1)
Quarter: 2019Q1

REPORT INFORMATION
  Report Type: Spontaneous
  Country: NL (occurrence: NL)
  Receive Date: 20190326
  Receipt Date: 20190326
  Transmission Date: 20190418
  Serious: Yes (Hospitalization)
  Sender: FDA-Public Use
  Company Number: NL-TEVA-2019-NL-1028099

PATIENT
  Age: 57 Year
  Sex: Female
  Weight: 110 kg

DRUGS (2)
  1. PREDNISON [Concomitant]
     Active Substance: PREDNISONE
  2. FENTANYL AUROBINDO PLEISTER 25 MG 1X PER 3 DAGEN [Suspect]
     Active Substance: FENTANYL
     Indication: SPINAL PAIN
     Dosage: 1X 3 DAYS; PLASTER 25 MG 1X PER 3 DAYS
     Dates: start: 20190113, end: 20190221

REACTIONS (7)
  - Malaise [Recovering/Resolving]
  - Vomiting [Recovering/Resolving]
  - Dizziness [Recovering/Resolving]
  - Therapeutic response unexpected [Recovering/Resolving]
  - Adrenocortical insufficiency acute [Recovering/Resolving]
  - Nausea [Recovering/Resolving]
  - Palpitations [Recovering/Resolving]

NARRATIVE: CASE EVENT DATE: 20190117
